FAERS Safety Report 6000537-8 (Version None)
Quarter: 2008Q4

REPORT INFORMATION
  Report Type: 
  Country: None (occurrence: None)
  Receive Date: 20081215
  Receipt Date: 20081203
  Transmission Date: 20090506
  Serious: Yes (Other)
  Sender: FDA-Public Use
  Company Number: BR-PFIZER INC-2008152424

PATIENT

DRUGS (1)
  1. FRONTAL [Suspect]
     Dosage: UNK
     Route: 048

REACTIONS (2)
  - DEPENDENCE [None]
  - DRUG WITHDRAWAL SYNDROME [None]
